FAERS Safety Report 8350063-6 (Version None)
Quarter: 2012Q2

REPORT INFORMATION
  Report Type: 
  Country: None (occurrence: None)
  Receive Date: 20120510
  Receipt Date: 20120507
  Transmission Date: 20120825
  Serious: Yes (Hospitalization)
  Sender: FDA-Public Use
  Company Number: US-BAYER-2010-006303

PATIENT
  Age: 36 Year
  Sex: Female
  Weight: 72.562 kg

DRUGS (15)
  1. YAZ [Suspect]
     Indication: PREMENSTRUAL SYNDROME
  2. YAZ [Suspect]
  3. OMEPRAZOLE [Concomitant]
     Indication: GASTROOESOPHAGEAL REFLUX DISEASE
     Dosage: UNK
     Dates: start: 20080101, end: 20090101
  4. SEROQUEL [Concomitant]
  5. AZITHROMYCIN [Concomitant]
     Dosage: 250 MG, UNK
     Route: 048
     Dates: start: 20080601
  6. CLONAZEPAM [Concomitant]
     Dosage: 0.5 MG, UNK
     Route: 048
     Dates: start: 20080610
  7. ACETAMINOPHEN AND HYDROCODONE BITARTRATE [Concomitant]
     Dosage: 5/500 MG
     Route: 048
     Dates: start: 20080525
  8. ZONISAMIDE [Concomitant]
     Dosage: 100 MG, UNK
     Route: 048
     Dates: start: 20080609
  9. KEPPRA [Concomitant]
  10. METHOCARBAMOL [Concomitant]
     Dosage: 500 MG, UNK
     Route: 048
     Dates: start: 20080527
  11. GABAPENTIN [Concomitant]
     Dosage: 300 MG, UNK
     Route: 048
     Dates: start: 20080609
  12. LEVAQUIN [Concomitant]
  13. YAZ [Suspect]
     Indication: CONTRACEPTION
     Dosage: UNK
     Dates: start: 20050101, end: 20080623
  14. PAXIL [Concomitant]
  15. SKELAXIN [Concomitant]
     Dosage: 800 MG, UNK
     Route: 048
     Dates: start: 20080609

REACTIONS (6)
  - CHEST PAIN [None]
  - MENTAL DISORDER [None]
  - PAIN [None]
  - PULMONARY EMBOLISM [None]
  - DYSPNOEA [None]
  - DEEP VEIN THROMBOSIS [None]
